FAERS Safety Report 20781175 (Version 1)
Quarter: 2022Q2

REPORT INFORMATION
  Report Type: Spontaneous
  Country: HR (occurrence: HR)
  Receive Date: 20220504
  Receipt Date: 20220504
  Transmission Date: 20220720
  Serious: Yes (Hospitalization, Other)
  Sender: FDA-Public Use
  Company Number: HR-SUN PHARMACEUTICAL INDUSTRIES LTD-2022R1-334581

PATIENT
  Age: 38 Year
  Sex: Female

DRUGS (3)
  1. METHYLPHENIDATE [Suspect]
     Active Substance: METHYLPHENIDATE
     Indication: Product used for unknown indication
     Dosage: 18 MILLIGRAM, DAILY
     Route: 065
  2. ZOLPIDEM [Concomitant]
     Active Substance: ZOLPIDEM TARTRATE
     Indication: Product used for unknown indication
     Dosage: 300 MG
     Route: 065
  3. TRAMADOL [Concomitant]
     Active Substance: TRAMADOL
     Indication: Product used for unknown indication
     Dosage: 1000 MILLIGRAM, DAILY
     Route: 065

REACTIONS (7)
  - Seizure [Unknown]
  - Somnolence [Unknown]
  - Fatigue [Unknown]
  - Memory impairment [Unknown]
  - Anxiety [Unknown]
  - Drug dependence [Unknown]
  - Withdrawal syndrome [Unknown]
